FAERS Safety Report 7884830-X (Version None)
Quarter: 2011Q4

REPORT INFORMATION
  Report Type: 
  Country: None (occurrence: None)
  Receive Date: 20111102
  Receipt Date: 20111024
  Transmission Date: 20120403
  Serious: Yes (Other)
  Sender: FDA-Public Use
  Company Number: PHHY2011CO95118

PATIENT
  Sex: Female

DRUGS (1)
  1. DIOVAN HCT [Suspect]
     Indication: HYPERTENSION
     Route: 048

REACTIONS (4)
  - LOWER LIMB FRACTURE [None]
  - OSTEOPOROSIS [None]
  - BODY HEIGHT DECREASED [None]
  - DISCOMFORT [None]
